FAERS Safety Report 9246936 (Version 1)
Quarter: 2013Q2

REPORT INFORMATION
  Report Type: Other
  Country: IT (occurrence: IT)
  Receive Date: 20130422
  Receipt Date: 20130422
  Transmission Date: 20140414
  Serious: Yes (Hospitalization)
  Sender: FDA-Public Use
  Company Number: IT-ACTAVIS-2013-06807

PATIENT
  Age: 57 Year
  Sex: Male

DRUGS (2)
  1. PARACETAMOL (UNKNOWN) [Suspect]
     Indication: INFLUENZA
     Dosage: 1000 MG, SINGLE
     Route: 048
     Dates: start: 20130204, end: 20130204
  2. IBUPROFEN (UNKNOWN) [Suspect]
     Indication: INFLUENZA
     Dosage: 600 MG, DAILY
     Route: 048
     Dates: start: 20130204, end: 20130204

REACTIONS (2)
  - Abdominal pain upper [Unknown]
  - Pruritus [Unknown]
